FAERS Safety Report 4908753-0 (Version None)
Quarter: 2006Q1

REPORT INFORMATION
  Report Type: 
  Country: None (occurrence: None)
  Receive Date: 20060210
  Receipt Date: 20051110
  Transmission Date: 20060701
  Serious: No
  Sender: FDA-Public Use
  Company Number: US-GLAXOSMITHKLINE-A0581796A

PATIENT
  Age: 63 Year
  Sex: Male

DRUGS (2)
  1. PAXIL CR [Suspect]
     Indication: DEPRESSION
     Dosage: 12.5MG PER DAY
     Route: 048
     Dates: start: 20051104, end: 20051107
  2. NASAL SPRAY [Concomitant]
     Indication: OSTEOPOROSIS

REACTIONS (1)
  - SPONTANEOUS PENILE ERECTION [None]
